FAERS Safety Report 18557094 (Version 2)
Quarter: 2020Q4

REPORT INFORMATION
  Report Type: Spontaneous
  Country: GB (occurrence: GB)
  Receive Date: 20201129
  Receipt Date: 20201229
  Transmission Date: 20210114
  Serious: Yes (Hospitalization, Other)
  Sender: FDA-Public Use
  Company Number: GB-NOVOPROD-769179

PATIENT
  Age: 60 Year
  Sex: Female
  Weight: 62 kg

DRUGS (4)
  1. NOVORAPID [Suspect]
     Active Substance: INSULIN ASPART
     Dosage: 0.45 IU, 1.40 IU, 1.80 IU, 4.95 IU
     Route: 058
     Dates: start: 20201118
  2. NOVORAPID [Suspect]
     Active Substance: INSULIN ASPART
     Dosage: 2.55 IU, 4.65IU
     Route: 058
     Dates: start: 20201119
  3. NOVORAPID [Suspect]
     Active Substance: INSULIN ASPART
     Dosage: 1.35 IU, 4.35 IU, 2.45 IU
     Route: 058
     Dates: start: 20201117
  4. NOVORAPID [Suspect]
     Active Substance: INSULIN ASPART
     Indication: TYPE 1 DIABETES MELLITUS
     Dosage: UNK
     Route: 058

REACTIONS (10)
  - Hypoglycaemic unconsciousness [Recovered/Resolved]
  - Hypoglycaemia [Recovered/Resolved]
  - Hyperglycaemia [Unknown]
  - Diabetic ketoacidosis [Recovered/Resolved]
  - Diabetes mellitus inadequate control [Recovered/Resolved]
  - Viral infection [Unknown]
  - Hypotension [Unknown]
  - Product dose omission issue [Unknown]
  - Hyponatraemia [Unknown]
  - Hyperglycaemia [Recovered/Resolved]

NARRATIVE: CASE EVENT DATE: 20201118
